FAERS Safety Report 6921494-3 (Version None)
Quarter: 2010Q3

REPORT INFORMATION
  Report Type: 
  Country: None (occurrence: None)
  Receive Date: 20100812
  Receipt Date: 20100805
  Transmission Date: 20110219
  Serious: Yes (Hospitalization)
  Sender: FDA-Public Use
  Company Number: PHHO2010KR11911

PATIENT
  Sex: Male
  Weight: 72 kg

DRUGS (1)
  1. AFINITOR [Suspect]
     Indication: THYROID CANCER
     Route: 048
     Dates: start: 20100721, end: 20100801

REACTIONS (4)
  - LYMPHADENOPATHY [None]
  - MUCOSAL INFLAMMATION [None]
  - NECK PAIN [None]
  - ORAL PAIN [None]
